FAERS Safety Report 9434905 (Version 5)
Quarter: 2013Q4

REPORT INFORMATION
  Report Type: Spontaneous
  Country: US (occurrence: US)
  Receive Date: 20130801
  Receipt Date: 20131016
  Transmission Date: 20140711
  Serious: Yes (Hospitalization, Other)
  Sender: FDA-Public Use
  Company Number: US-009507513-1308USA000208

PATIENT
  Sex: Female
  Weight: 111.11 kg

DRUGS (2)
  1. NUVARING [Suspect]
     Indication: MENORRHAGIA
     Dosage: UNK/FOR 3 WEEKS
     Route: 067
     Dates: start: 201005, end: 20100906
  2. NUVARING [Suspect]
     Indication: CONTRACEPTION

REACTIONS (11)
  - Iron deficiency anaemia [Unknown]
  - Pulmonary embolism [Not Recovered/Not Resolved]
  - Pulmonary embolism [Unknown]
  - Pulmonary infarction [Unknown]
  - Genital labial operation [Recovering/Resolving]
  - Off label use [Recovered/Resolved]
  - Hypothyroidism [Unknown]
  - Labia enlarged [Recovering/Resolving]
  - Inflammatory pain [Unknown]
  - Vulvar erosion [Unknown]
  - Genital herpes [Unknown]
